FAERS Safety Report 7652960-3 (Version None)
Quarter: 2011Q3

REPORT INFORMATION
  Report Type: 
  Country: None (occurrence: None)
  Receive Date: 20110803
  Receipt Date: 20110729
  Transmission Date: 20111222
  Serious: Yes (Hospitalization)
  Sender: FDA-Public Use
  Company Number: FR-ROCHE-754958

PATIENT
  Sex: Female
  Weight: 54 kg

DRUGS (13)
  1. BEVACIZUMAB [Suspect]
     Route: 042
  2. SECTRAL [Concomitant]
     Dates: start: 20060101
  3. ARANESP [Concomitant]
     Dates: start: 20100818
  4. XALATAN [Concomitant]
     Dates: start: 19970101
  5. FLUOROURACIL [Suspect]
     Route: 065
  6. IMODIUM [Concomitant]
     Dates: start: 20100601
  7. OXALIPLATIN [Suspect]
     Route: 065
  8. SMECTA [Concomitant]
     Dates: start: 20100601
  9. IRINOTECAN HCL [Suspect]
     Route: 065
  10. PAROXETINE HCL [Concomitant]
     Dates: start: 20080208
  11. PILOCARPINE [Concomitant]
     Dates: start: 19970101
  12. CAPECITABINE [Suspect]
     Route: 048
  13. BEVACIZUMAB [Suspect]
     Dosage: DRUG TEMPORARILY INTERRUPTED. DATE OF LAST DOSE PRIOR TO SAE:19 JAN 2011
     Route: 042
     Dates: start: 20101208, end: 20110119

REACTIONS (1)
  - ATRIAL TACHYCARDIA [None]
